FAERS Safety Report 5987346-0 (Version None)
Quarter: 2008Q4

REPORT INFORMATION
  Report Type: 
  Country: None (occurrence: None)
  Receive Date: 20081209
  Receipt Date: 20081201
  Transmission Date: 20090506
  Serious: Yes (Other)
  Sender: FDA-Public Use
  Company Number: PHBS2008BR06504

PATIENT
  Age: 55 Year
  Sex: Male

DRUGS (1)
  1. IMATINIB MESYLATE [Suspect]
     Indication: CHRONIC MYELOID LEUKAEMIA

REACTIONS (11)
  - BIOPSY TONGUE [None]
  - BURNING SENSATION [None]
  - DYSGEUSIA [None]
  - DYSPHASIA [None]
  - GLOSSODYNIA [None]
  - HEPATITIS C POSITIVE [None]
  - INFLAMMATION [None]
  - LIP PAIN [None]
  - ORAL LICHEN PLANUS [None]
  - RASH [None]
  - SKIN PLAQUE [None]
